FAERS Safety Report 13494567 (Version 3)
Quarter: 2017Q2

REPORT INFORMATION
  Report Type: Spontaneous
  Country: FI (occurrence: FI)
  Receive Date: 20170428
  Receipt Date: 20170614
  Transmission Date: 20170830
  Serious: Yes (Hospitalization, Other)
  Sender: FDA-Public Use
  Company Number: FI-ROCHE-1922427

PATIENT
  Age: 78 Year
  Sex: Male

DRUGS (9)
  1. LEUKERAN [Suspect]
     Active Substance: CHLORAMBUCIL
     Indication: LYMPHOCYTIC LYMPHOMA
     Route: 048
     Dates: start: 20161124, end: 20161124
  2. LEUKERAN [Suspect]
     Active Substance: CHLORAMBUCIL
     Indication: CHRONIC LYMPHOCYTIC LEUKAEMIA
     Route: 048
     Dates: start: 20161222, end: 20161222
  3. PARACETAMOL [Concomitant]
     Active Substance: ACETAMINOPHEN
     Indication: PREMEDICATION
     Route: 048
  4. KALCIPOS-D [Concomitant]
     Active Substance: CALCIUM CARBONATE\CHOLECALCIFEROL
     Dosage: 500 MG CALCIUM CARBONATE  / 10 MICROG D3 ONCE A DAY
     Route: 065
  5. SODIUM CHLORIDE. [Concomitant]
     Active Substance: SODIUM CHLORIDE
     Dosage: 0.9 INFUSION 500 ML FOR 1 HOUR BEFORE OBINITUZUMAB AND 0.9 INFUSION 125 ML/HOUR DURING OBINITUZUMAB
     Route: 065
  6. GAZYVARO [Suspect]
     Active Substance: OBINUTUZUMAB
     Route: 042
     Dates: start: 20170119, end: 20170119
  7. LEUKERAN [Suspect]
     Active Substance: CHLORAMBUCIL
     Route: 048
     Dates: start: 20170119, end: 20170119
  8. GAZYVARO [Suspect]
     Active Substance: OBINUTUZUMAB
     Indication: LYMPHOCYTIC LYMPHOMA
     Route: 042
     Dates: start: 20161124, end: 20161208
  9. GAZYVARO [Suspect]
     Active Substance: OBINUTUZUMAB
     Indication: CHRONIC LYMPHOCYTIC LEUKAEMIA
     Route: 042
     Dates: start: 20161222, end: 20161222

REACTIONS (3)
  - Rash [Unknown]
  - Lichenoid keratosis [Not Recovered/Not Resolved]
  - Thrombocytopenia [Unknown]

NARRATIVE: CASE EVENT DATE: 201701
